FAERS Safety Report 12574003 (Version 1)
Quarter: 2016Q3

REPORT INFORMATION
  Report Type: Spontaneous
  Country: FR (occurrence: FR)
  Receive Date: 20160720
  Receipt Date: 20160720
  Transmission Date: 20161109
  Serious: Yes (Death, Life-Threatening, Hospitalization, Other)
  Sender: FDA-Public Use
  Company Number: FR-BRISTOL-MYERS SQUIBB COMPANY-BMS-2016-057940

PATIENT
  Age: 54 Year
  Sex: Female
  Weight: 54 kg

DRUGS (2)
  1. OPDIVO [Suspect]
     Active Substance: NIVOLUMAB
     Dosage: 190 MG, UNK
     Route: 065
     Dates: start: 20160419
  2. OPDIVO [Suspect]
     Active Substance: NIVOLUMAB
     Indication: LUNG ADENOCARCINOMA
     Dosage: 190 MG, UNK
     Route: 065
     Dates: start: 20160405

REACTIONS (3)
  - Respiratory failure [Fatal]
  - Pleural effusion [Fatal]
  - Lung disorder [Fatal]

NARRATIVE: CASE EVENT DATE: 20160427
